FAERS Safety Report 5127010-3 (Version None)
Quarter: 2006Q4

REPORT INFORMATION
  Report Type: 
  Country: None (occurrence: None)
  Receive Date: 20061013
  Receipt Date: 20060905
  Transmission Date: 20070319
  Serious: Yes (Other)
  Sender: FDA-Public Use
  Company Number: GB-GLAXOSMITHKLINE-B0437005A

PATIENT
  Age: 54 Year
  Sex: Male

DRUGS (1)
  1. LAMICTAL [Suspect]
     Indication: EPILEPSY
     Route: 048
     Dates: start: 19920101

REACTIONS (6)
  - ABDOMINAL PAIN [None]
  - ASTHMA [None]
  - CONVULSION [None]
  - DIARRHOEA [None]
  - EPILEPSY [None]
  - LACTOSE INTOLERANCE [None]
